FAERS Safety Report 5246975-2 (Version None)
Quarter: 2007Q1

REPORT INFORMATION
  Report Type: 
  Country: None (occurrence: None)
  Receive Date: 20070226
  Receipt Date: 20070222
  Transmission Date: 20070707
  Serious: Yes (Other)
  Sender: FDA-Public Use
  Company Number: US-GLAXOSMITHKLINE-A0640670A

PATIENT
  Sex: Male

DRUGS (2)
  1. MALARONE [Suspect]
     Indication: PROPHYLAXIS
     Route: 048
  2. PURINETHOL [Concomitant]
     Dates: start: 20060101

REACTIONS (1)
  - COLITIS ULCERATIVE [None]
